FAERS Safety Report 12320240 (Version 1)
Quarter: 2016Q2

REPORT INFORMATION
  Report Type: Report from Study
  Country: IT (occurrence: IT)
  Receive Date: 20160429
  Receipt Date: 20160429
  Transmission Date: 20160815
  Serious: Yes (Hospitalization)
  Sender: FDA-Public Use
  Company Number: IT-MYLANLABS-2016M1017337

PATIENT
  Age: 36 Year
  Sex: Female

DRUGS (3)
  1. NICARDIPINE [Suspect]
     Active Substance: NICARDIPINE
     Indication: TOCOLYSIS
  2. NICARDIPINE [Suspect]
     Active Substance: NICARDIPINE
     Indication: OFF LABEL USE
     Dosage: DAILY DOSE OF 2-4 MG/HOUR
     Route: 042
  3. FUROSEMIDE. [Suspect]
     Active Substance: FUROSEMIDE
     Indication: ACUTE PULMONARY OEDEMA

REACTIONS (3)
  - Off label use [Recovered/Resolved]
  - Maternal exposure during pregnancy [Unknown]
  - Acute pulmonary oedema [Recovered/Resolved]
